FAERS Safety Report 8777339 (Version 3)
Quarter: 2012Q4

REPORT INFORMATION
  Report Type: 
  Country: US (occurrence: US)
  Receive Date: 20120911
  Receipt Date: 20120928
  Transmission Date: 20130627
  Serious: Yes (Death)
  Sender: FDA-Public Use
  Company Number: US-PFIZER INC-2012219920

PATIENT
  Age: 68 Year
  Sex: Male

DRUGS (18)
  1. VFEND [Suspect]
     Indication: ACUTE MYELOID LEUKAEMIA
     Dosage: 200 mg, 2x/day
     Route: 048
     Dates: start: 20120215
  2. GLUCOPHAGE [Concomitant]
     Dosage: UNK
  3. LEVAQUIN [Concomitant]
  4. PRILOSEC [Concomitant]
  5. NORCO [Concomitant]
     Dosage: UNK
  6. ZOFRAN [Concomitant]
     Dosage: UNK
  7. ZYLOPRIM [Concomitant]
  8. HYDREA [Concomitant]
     Dosage: UNK
  9. ACYCLOVIR [Concomitant]
     Dosage: UNK
  10. COMPAZINE [Concomitant]
     Dosage: UNK
  11. NEXAVAR [Concomitant]
  12. IMODIUM [Concomitant]
  13. K-DUR [Concomitant]
  14. GLUCOTROL [Concomitant]
  15. MAGNESIUM [Concomitant]
  16. MULTIVITAMINS [Concomitant]
  17. VASOTEC [Concomitant]
  18. CHLORHEXIDINE [Concomitant]

REACTIONS (2)
  - Disease progression [Fatal]
  - Acute myeloid leukaemia [Fatal]
